FAERS Safety Report 5356895-0 (Version None)
Quarter: 2007Q2

REPORT INFORMATION
  Report Type: 
  Country: None (occurrence: None)
  Receive Date: 20070530
  Receipt Date: 20061113
  Transmission Date: 20071010
  Serious: Yes (Hospitalization)
  Sender: FDA-Public Use
  Company Number: US200608003249

PATIENT
  Age: 47 Year
  Sex: Female
  Weight: 65.8 kg

DRUGS (9)
  1. ZYPREXA [Suspect]
     Dosage: 5 MG,
     Dates: start: 19991101, end: 20001201
  2. QUETIAPINE FUMARATE [Concomitant]
  3. RISPERIDONE [Concomitant]
  4. LITHIUM CARBONATE [Concomitant]
  5. BUPROPION HCL [Concomitant]
  6. CITALOPRAM HYDROBROMIDE [Concomitant]
  7. NEFAZODONE HCL [Concomitant]
  8. PAROXETINE [Concomitant]
  9. EFFEXOR [Concomitant]

REACTIONS (3)
  - DIABETES MELLITUS [None]
  - KETONURIA [None]
  - METABOLIC DISORDER [None]
